FAERS Safety Report 9500654 (Version 4)
Quarter: 2015Q2

REPORT INFORMATION
  Report Type: Spontaneous
  Country: DE (occurrence: DE)
  Receive Date: 20130905
  Receipt Date: 20150403
  Transmission Date: 20150821
  Serious: Yes (Other)
  Sender: FDA-Public Use
  Company Number: DE-ALEXION PHARMACEUTICALS INC.-A201302137

PATIENT

DRUGS (7)
  1. SOLIRIS [Suspect]
     Active Substance: ECULIZUMAB
     Dosage: TWICE THE AMOUNT RECOMMENDED, UNK
     Route: 042
     Dates: start: 201202
  2. SOLIRIS [Suspect]
     Active Substance: ECULIZUMAB
     Dosage: UNK, WEEKLY
     Route: 042
     Dates: start: 201303
  3. SODIUM BICARBONATE. [Concomitant]
     Active Substance: SODIUM BICARBONATE
     Indication: PRODUCT USED FOR UNKNOWN INDICATION
     Route: 065
  4. ANTIHYPERTENSIVES [Concomitant]
     Active Substance: UNSPECIFIED INGREDIENT
     Indication: PRODUCT USED FOR UNKNOWN INDICATION
     Route: 065
  5. SOLIRIS [Suspect]
     Active Substance: ECULIZUMAB
     Indication: HAEMOLYTIC URAEMIC SYNDROME
     Dosage: UNK
     Route: 042
     Dates: start: 201111
  6. SOLIRIS [Suspect]
     Active Substance: ECULIZUMAB
     Dosage: UNK, CONTINUOUS
     Route: 042
     Dates: start: 201102
  7. SOLIRIS [Suspect]
     Active Substance: ECULIZUMAB
     Dosage: 600 MG, Q2W
     Route: 042
     Dates: start: 201203

REACTIONS (13)
  - Pancreatitis [Unknown]
  - Drug ineffective [Unknown]
  - Haemolytic uraemic syndrome [Unknown]
  - Infection [Unknown]
  - Malignant hypertension [Unknown]
  - Vomiting [Unknown]
  - Acute kidney injury [Unknown]
  - Drug administration error [Unknown]
  - Diarrhoea [Unknown]
  - Haemolysis [Unknown]
  - Blood lactate dehydrogenase increased [Unknown]
  - Thrombotic microangiopathy [Unknown]
  - Seizure [Unknown]

NARRATIVE: CASE EVENT DATE: 201106
